FAERS Safety Report 7988316-3 (Version None)
Quarter: 2011Q4

REPORT INFORMATION
  Report Type: 
  Country: None (occurrence: None)
  Receive Date: 20111216
  Receipt Date: 20111206
  Transmission Date: 20120403
  Serious: Yes (Hospitalization, Other)
  Sender: FDA-Public Use
  Company Number: US-ABBOTT-11P-163-0882719-00

PATIENT
  Sex: Female
  Weight: 112.59 kg

DRUGS (20)
  1. PRILOSEC OCT [Concomitant]
     Indication: BARRETT'S OESOPHAGUS
  2. VITAMIN E [Concomitant]
     Indication: PRODUCT USED FOR UNKNOWN INDICATION
  3. SYNTHROID [Suspect]
     Indication: BASEDOW'S DISEASE
     Dates: start: 19960101
  4. SYNTHROID [Suspect]
     Indication: RADIOTHERAPY TO THYROID
  5. CELEBREX [Concomitant]
     Indication: ARTHRITIS
  6. FUROSEMIDE [Concomitant]
     Indication: FLUID RETENTION
  7. GLUCOSAMINE / CHONDROITIN MSM [Concomitant]
     Indication: PRODUCT USED FOR UNKNOWN INDICATION
     Dosage: 600/500
  8. TRAZODONE HCL [Concomitant]
     Indication: FIBROMYALGIA
  9. VITAMIN C [Concomitant]
     Indication: PRODUCT USED FOR UNKNOWN INDICATION
  10. STOOL SOFTNER AND STIMULANT [Concomitant]
     Indication: PRODUCT USED FOR UNKNOWN INDICATION
  11. TOVIAZ [Concomitant]
     Indication: STRESS URINARY INCONTINENCE
  12. BUPROPION HCL [Concomitant]
     Indication: DEPRESSION
  13. CAL/MAG CITRATE [Concomitant]
     Indication: PRODUCT USED FOR UNKNOWN INDICATION
  14. CARBAMAZEPINE [Interacting]
     Indication: MEDICATION ERROR
     Dates: start: 20110624, end: 20110827
  15. LEXAPRO [Concomitant]
     Indication: FIBROMYALGIA
  16. VITAMIN B-12 [Concomitant]
     Indication: PRODUCT USED FOR UNKNOWN INDICATION
  17. VITAMIN D [Concomitant]
     Indication: PRODUCT USED FOR UNKNOWN INDICATION
  18. POTASSIUM CHLORIDE [Concomitant]
     Indication: BLOOD POTASSIUM ABNORMAL
     Dosage: MICRO, 1 IN AM
  19. GARLIC [Concomitant]
     Indication: PRODUCT USED FOR UNKNOWN INDICATION
  20. THERA TEARS OMEGA -3 [Concomitant]
     Indication: PRODUCT USED FOR UNKNOWN INDICATION

REACTIONS (21)
  - APPENDICITIS PERFORATED [None]
  - OEDEMA PERIPHERAL [None]
  - DISSOCIATION [None]
  - SPINAL NERVE STIMULATOR IMPLANTATION [None]
  - KNEE ARTHROPLASTY [None]
  - PAIN [None]
  - PERIPHERAL EMBOLISM [None]
  - UNEVALUABLE EVENT [None]
  - ANXIETY [None]
  - DEPRESSION [None]
  - MEMORY IMPAIRMENT [None]
  - INFECTION [None]
  - PAIN IN EXTREMITY [None]
  - HYPERSOMNIA [None]
  - DRUG INTERACTION [None]
  - APATHY [None]
  - SPINAL FUSION SURGERY [None]
  - JOINT SWELLING [None]
  - APPENDICITIS [None]
  - CARCINOID TUMOUR [None]
  - COLECTOMY [None]
